FAERS Safety Report 6140495-9 (Version None)
Quarter: 2009Q1

REPORT INFORMATION
  Report Type: 
  Country: None (occurrence: None)
  Receive Date: 20090331
  Receipt Date: 20090316
  Transmission Date: 20090719
  Serious: Yes (Hospitalization)
  Sender: FDA-Public Use
  Company Number: US-2009-00089

PATIENT
  Age: 41 Year
  Sex: Male

DRUGS (1)
  1. CEFTRIAXONE [Suspect]
     Dosage: 1 GM ONCE

REACTIONS (8)
  - ABDOMINAL PAIN UPPER [None]
  - DIZZINESS [None]
  - FACE INJURY [None]
  - FALL [None]
  - HYPERHIDROSIS [None]
  - INCOHERENT [None]
  - LOSS OF CONSCIOUSNESS [None]
  - NAUSEA [None]
